FAERS Safety Report 12592630 (Version 14)
Quarter: 2017Q1

REPORT INFORMATION
  Report Type: Spontaneous
  Country: US (occurrence: US)
  Receive Date: 20160726
  Receipt Date: 20170109
  Transmission Date: 20170428
  Serious: Yes (Hospitalization, Other)
  Sender: FDA-Public Use
  Company Number: US-GLAXOSMITHKLINE-US2016GSK107364

PATIENT
  Age: 73 Year
  Sex: Male

DRUGS (13)
  1. FLOLAN [Suspect]
     Active Substance: EPOPROSTENOL SODIUM
     Dosage: 19 DF, CO
  2. FLOLAN [Suspect]
     Active Substance: EPOPROSTENOL SODIUM
     Indication: PULMONARY ARTERIAL HYPERTENSION
     Dosage: 12 NG/KG/MIN, CONTINUOUS
     Dates: start: 20160715
  3. FLOLAN [Suspect]
     Active Substance: EPOPROSTENOL SODIUM
     Indication: PULMONARY ARTERIAL HYPERTENSION
     Dosage: UNK
     Dates: start: 20160715
  4. FLOLAN [Suspect]
     Active Substance: EPOPROSTENOL SODIUM
     Dosage: 30 NG/KG/MIN, CO
     Route: 042
  5. FLOLAN [Suspect]
     Active Substance: EPOPROSTENOL SODIUM
     Dosage: UNK
     Dates: start: 20160715
  6. ADCIRCA [Concomitant]
     Active Substance: TADALAFIL
  7. FLOLAN [Suspect]
     Active Substance: EPOPROSTENOL SODIUM
     Dosage: 25 NG/KG/MIN CO
  8. FLOLAN [Suspect]
     Active Substance: EPOPROSTENOL SODIUM
     Dosage: 10 DF, CO
  9. LOSARTAN. [Suspect]
     Active Substance: LOSARTAN
     Indication: PRODUCT USED FOR UNKNOWN INDICATION
  10. FLOLAN [Suspect]
     Active Substance: EPOPROSTENOL SODIUM
     Dosage: 15 NG/KG/MIN, CONTINUOUS
  11. FLOLAN [Suspect]
     Active Substance: EPOPROSTENOL SODIUM
     Indication: PULMONARY ARTERIAL HYPERTENSION
     Dosage: UNK
     Dates: start: 20160715
  12. FLOLAN [Suspect]
     Active Substance: EPOPROSTENOL SODIUM
     Dosage: UNK
  13. TYVASO [Concomitant]
     Active Substance: TREPROSTINIL

REACTIONS (24)
  - Device related sepsis [Unknown]
  - Sinusitis [Unknown]
  - Hospitalisation [Unknown]
  - Diarrhoea [Unknown]
  - Hypotension [Unknown]
  - Skin discolouration [Not Recovered/Not Resolved]
  - Dyspnoea [Not Recovered/Not Resolved]
  - Oxygen saturation decreased [Not Recovered/Not Resolved]
  - Rash erythematous [Not Recovered/Not Resolved]
  - Oxygen supplementation [Unknown]
  - Headache [Unknown]
  - Rash macular [Not Recovered/Not Resolved]
  - Ill-defined disorder [Unknown]
  - Sepsis [Unknown]
  - Central venous catheterisation [Recovered/Resolved]
  - Peripheral swelling [Unknown]
  - Pulmonary arterial hypertension [Unknown]
  - Device related infection [Unknown]
  - Musculoskeletal discomfort [Not Recovered/Not Resolved]
  - Malaise [Unknown]
  - Complication associated with device [Unknown]
  - Nausea [Unknown]
  - Fluid retention [Unknown]
  - Product use issue [Unknown]

NARRATIVE: CASE EVENT DATE: 201607
